FAERS Safety Report 11282638 (Version 2)
Quarter: 2015Q3

REPORT INFORMATION
  Report Type: Spontaneous
  Country: CA (occurrence: CA)
  Receive Date: 20150720
  Receipt Date: 20150729
  Transmission Date: 20151125
  Serious: Yes (Life-Threatening)
  Sender: FDA-Public Use
  Company Number: PHHY2015CA084352

PATIENT
  Sex: Female

DRUGS (1)
  1. SANDOSTATIN LAR DEPOT [Suspect]
     Active Substance: OCTREOTIDE ACETATE
     Indication: CARCINOID TUMOUR
     Dosage: 60 MG, QW
     Route: 030

REACTIONS (5)
  - Swelling face [Recovered/Resolved]
  - Carcinoid crisis [Recovered/Resolved]
  - Loss of consciousness [Recovered/Resolved]
  - Eye swelling [Unknown]
  - Oropharyngeal swelling [Unknown]
